FAERS Safety Report 22245253 (Version 1)
Quarter: 2023Q2

REPORT INFORMATION
  Report Type: Spontaneous
  Country: US (occurrence: US)
  Receive Date: 20230424
  Receipt Date: 20230424
  Transmission Date: 20230722
  Serious: Yes (Other)
  Sender: FDA-Public Use
  Company Number: US-JNJFOC-20230433672

PATIENT
  Sex: Female

DRUGS (3)
  1. ELMIRON [Suspect]
     Active Substance: PENTOSAN POLYSULFATE SODIUM
     Indication: Cystitis interstitial
     Route: 048
     Dates: start: 20050419
  2. ELMIRON [Suspect]
     Active Substance: PENTOSAN POLYSULFATE SODIUM
     Dosage: 100 MG CAPSULE (TAKING 2 CAPSULES, TWICE DAILY)
     Route: 048
  3. ELMIRON [Suspect]
     Active Substance: PENTOSAN POLYSULFATE SODIUM
     Dosage: DOSAGE WAS 400 MG PER DAY, FOR AN ESTIMATED TOTAL EXPOSURE OF AT LEAST 1,460 GRAMS
     Route: 048

REACTIONS (3)
  - Maculopathy [Unknown]
  - Maculopathy [Unknown]
  - Off label use [Unknown]
